FAERS Safety Report 6530128-1 (Version None)
Quarter: 2010Q1

REPORT INFORMATION
  Report Type: 
  Country: None (occurrence: None)
  Receive Date: 20100107
  Receipt Date: 20091216
  Transmission Date: 20100710
  Serious: Yes (Death)
  Sender: FDA-Public Use
  Company Number: JP-ROCHE-677747

PATIENT
  Age: 63 Year
  Sex: Male

DRUGS (3)
  1. VESANOID [Suspect]
     Indication: ACUTE PROMYELOCYTIC LEUKAEMIA
     Route: 048
  2. DAUNORUBICIN HYDROCHLORIDE [Concomitant]
     Route: 065
  3. CYTARABINE [Concomitant]
     Route: 065

REACTIONS (1)
  - DISEASE PROGRESSION [None]
